FAERS Safety Report 12094527 (Version 1)
Quarter: 2016Q1

REPORT INFORMATION
  Report Type: Spontaneous
  Country: US (occurrence: US)
  Receive Date: 20160219
  Receipt Date: 20160219
  Transmission Date: 20160526
  Serious: No
  Sender: FDA-Public Use
  Company Number: US-ELI_LILLY_AND_COMPANY-US201601008433

PATIENT
  Age: 55 Year
  Sex: Female

DRUGS (8)
  1. HUMALOG [Suspect]
     Active Substance: INSULIN LISPRO
     Indication: TYPE 2 DIABETES MELLITUS
     Dosage: SLIDING SCALE
     Route: 065
     Dates: start: 20160120
  2. HUMALOG [Suspect]
     Active Substance: INSULIN LISPRO
     Dosage: 25 U, UNKNOWN
     Route: 065
     Dates: start: 20160120
  3. HUMALOG [Suspect]
     Active Substance: INSULIN LISPRO
     Dosage: UNITS VARY, 5 TIMES DAILY
     Route: 065
     Dates: start: 20160120
  4. LEVEMIR [Concomitant]
     Active Substance: INSULIN DETEMIR
     Indication: PRODUCT USED FOR UNKNOWN INDICATION
     Dosage: 40 U, EACH MORNING
     Route: 065
  5. HUMALOG [Suspect]
     Active Substance: INSULIN LISPRO
     Dosage: SLIDING SCALE
     Route: 065
  6. HUMALOG [Suspect]
     Active Substance: INSULIN LISPRO
     Dosage: UNITS VARY, 5 TIMES DAILY
  7. LEVEMIR [Concomitant]
     Active Substance: INSULIN DETEMIR
     Dosage: 50 U, EACH EVENING
     Route: 065
  8. HUMALOG [Suspect]
     Active Substance: INSULIN LISPRO
     Dosage: 25 U, UNKNOWN
     Route: 065

REACTIONS (8)
  - Underdose [Unknown]
  - Malaise [Unknown]
  - Drug ineffective [Unknown]
  - Inappropriate schedule of drug administration [Unknown]
  - Insomnia [Unknown]
  - Blood glucose increased [Unknown]
  - Vision blurred [Unknown]
  - Incorrect product storage [Unknown]

NARRATIVE: CASE EVENT DATE: 20160120
